FAERS Safety Report 10014991 (Version 2)
Quarter: 2014Q2

REPORT INFORMATION
  Report Type: Report from Study
  Country: US (occurrence: US)
  Receive Date: 20140317
  Receipt Date: 20140630
  Transmission Date: 20141212
  Serious: Yes (Hospitalization, Other)
  Sender: FDA-Public Use
  Company Number: US-ACTELION-A-US2014-95834

PATIENT
  Age: 76 Year
  Sex: Male

DRUGS (4)
  1. TRACLEER [Suspect]
     Indication: PULMONARY ARTERIAL HYPERTENSION
     Dosage: UNK
     Route: 048
  2. COUMADIN [Concomitant]
  3. TYVASO [Concomitant]
  4. RIOCIGUAT [Concomitant]

REACTIONS (3)
  - Post procedural haematoma [Recovered/Resolved]
  - Pulmonary thrombosis [Unknown]
  - Cardiac operation [Recovering/Resolving]
